FAERS Safety Report 6627129-1 (Version None)
Quarter: 2010Q1

REPORT INFORMATION
  Report Type: 
  Country: None (occurrence: None)
  Receive Date: 20100311
  Receipt Date: 20090929
  Transmission Date: 20100710
  Serious: No
  Sender: FDA-Public Use
  Company Number: A0809469A

PATIENT
  Age: 56 Year
  Sex: Female

DRUGS (1)
  1. NICOTINE POLACRILEX [Suspect]

REACTIONS (7)
  - GLOSSITIS [None]
  - GLOSSODYNIA [None]
  - OEDEMA MOUTH [None]
  - ORAL DISCOMFORT [None]
  - STOMATITIS [None]
  - SWELLING FACE [None]
  - SWOLLEN TONGUE [None]
